FAERS Safety Report 9875386 (Version 1)
Quarter: 2014Q1

REPORT INFORMATION
  Report Type: Spontaneous
  Country: US (occurrence: None)
  Receive Date: 20140205
  Receipt Date: 20140205
  Transmission Date: 20141002
  Serious: Yes (Hospitalization)
  Sender: FDA-Public Use
  Company Number: None

PATIENT
  Age: 76 Year
  Sex: Female
  Weight: 103.5 kg

DRUGS (1)
  1. METHOTREXATE [Suspect]

REACTIONS (4)
  - Wheezing [None]
  - Crepitations [None]
  - Fluid overload [None]
  - Tachypnoea [None]
